FAERS Safety Report 5544610-7 (Version None)
Quarter: 2007Q4

REPORT INFORMATION
  Report Type: 
  Country: None (occurrence: None)
  Receive Date: 20071210
  Receipt Date: 20070105
  Transmission Date: 20080405
  Serious: No
  Sender: FDA-Public Use
  Company Number: US-AMGEN-KDL205873

PATIENT
  Sex: Female

DRUGS (8)
  1. ENBREL [Suspect]
     Indication: PSORIATIC ARTHROPATHY
     Route: 058
     Dates: start: 20070113
  2. ENBREL [Suspect]
     Route: 058
     Dates: start: 20061127, end: 20061127
  3. MELOXICAM [Concomitant]
     Dates: start: 20060804
  4. OMEPRAZOLE [Concomitant]
  5. SYNTHROID [Concomitant]
  6. LOSARTAN POTASSIUM [Concomitant]
  7. XANAX [Concomitant]
  8. TYLENOL [Concomitant]

REACTIONS (4)
  - INFLUENZA [None]
  - SINUSITIS [None]
  - UPPER RESPIRATORY TRACT INFECTION [None]
  - URINARY TRACT INFECTION [None]
